FAERS Safety Report 16403203 (Version 1)
Quarter: 2019Q2

REPORT INFORMATION
  Report Type: Spontaneous
  Country: GB (occurrence: GB)
  Receive Date: 20190607
  Receipt Date: 20190607
  Transmission Date: 20190711
  Serious: Yes (Death)
  Sender: FDA-Public Use
  Company Number: GB-TEVA-2019-GB-1058151

PATIENT
  Age: 47 Year
  Sex: Male
  Weight: 70 kg

DRUGS (13)
  1. DIHYDROCODEINE [Concomitant]
     Active Substance: DIHYDROCODEINE
  2. NAPROXEN. [Concomitant]
     Active Substance: NAPROXEN
  3. BISACODYL. [Concomitant]
     Active Substance: BISACODYL
  4. VENLAFAXINE [Concomitant]
     Active Substance: VENLAFAXINE HYDROCHLORIDE
  5. QUETIAPINE. [Suspect]
     Active Substance: QUETIAPINE
     Dosage: AT NIGHT
     Route: 048
  6. CLONAZEPAM. [Concomitant]
     Active Substance: CLONAZEPAM
  7. GLICLAZIDE [Concomitant]
     Active Substance: GLICLAZIDE
  8. SILDENAFIL. [Concomitant]
     Active Substance: SILDENAFIL
  9. PARACETAMOL [Concomitant]
     Active Substance: ACETAMINOPHEN
  10. VALPROIC ACID. [Concomitant]
     Active Substance: VALPROIC ACID
  11. QUININE SULFATE. [Concomitant]
     Active Substance: QUININE SULFATE
  12. METFORMIN [Concomitant]
     Active Substance: METFORMIN HYDROCHLORIDE
     Indication: TYPE 2 DIABETES MELLITUS
     Route: 048
  13. LANSOPRAZOLE. [Concomitant]
     Active Substance: LANSOPRAZOLE

REACTIONS (3)
  - Condition aggravated [Fatal]
  - Toxicity to various agents [Fatal]
  - Alcoholic liver disease [Fatal]
